FAERS Safety Report 6646262-1 (Version None)
Quarter: 2010Q1

REPORT INFORMATION
  Report Type: 
  Country: None (occurrence: None)
  Receive Date: 20100323
  Receipt Date: 20100308
  Transmission Date: 20100710
  Serious: Yes (Other)
  Sender: FDA-Public Use
  Company Number: TR-ROCHE-690815

PATIENT
  Sex: Female

DRUGS (5)
  1. MYCOPHENOLATE MOFETIL [Suspect]
     Indication: LUPUS NEPHRITIS
     Dosage: 2 DIVIDED DOSES
     Route: 048
  2. METHYLPREDNISOLONE [Suspect]
     Indication: LUPUS NEPHRITIS
     Dosage: RECEIVED 3 PULSES, ON CONSECUTIVE DAYS
     Route: 042
  3. PREDNISONE [Suspect]
     Indication: LUPUS NEPHRITIS
     Dosage: 0.5 MG-1MG/KG PER DAY
     Route: 048
  4. CYCLOPHOSPHAMIDE [Suspect]
     Indication: LUPUS NEPHRITIS
     Dosage: FOR 6 MONTHS
     Route: 042
  5. AZATHIOPRINE [Suspect]
     Indication: LUPUS NEPHRITIS
     Route: 048

REACTIONS (4)
  - HISTIOCYTOSIS HAEMATOPHAGIC [None]
  - OSTEONECROSIS [None]
  - RENAL FAILURE [None]
  - THROMBOCYTOPENIA [None]
